FAERS Safety Report 19297596 (Version 2)
Quarter: 2021Q2

REPORT INFORMATION
  Report Type: Report from Study
  Country: None (occurrence: US)
  Receive Date: 20210525
  Receipt Date: 20210526
  Transmission Date: 20210717
  Serious: Yes (Other)
  Sender: FDA-Public Use
  Company Number: US-ABBVIE-21K-163-3910155-00

PATIENT
  Sex: Female

DRUGS (4)
  1. VENCLEXTA [Suspect]
     Active Substance: VENETOCLAX
     Indication: B-CELL PROLYMPHOCYTIC LEUKAEMIA
     Route: 048
  2. LASIX [Suspect]
     Active Substance: FUROSEMIDE
     Indication: PRODUCT USED FOR UNKNOWN INDICATION
     Route: 065
  3. VENCLEXTA [Suspect]
     Active Substance: VENETOCLAX
     Route: 048
     Dates: start: 202007
  4. LASIX [Suspect]
     Active Substance: FUROSEMIDE
     Route: 065

REACTIONS (9)
  - Haemoglobin abnormal [Unknown]
  - Cognitive disorder [Unknown]
  - Erythema [Unknown]
  - Skin laceration [Unknown]
  - Mobility decreased [Unknown]
  - Skin necrosis [Unknown]
  - Skin erosion [Unknown]
  - Joint swelling [Unknown]
  - Blood creatinine increased [Unknown]
